FAERS Safety Report 8311298-1 (Version None)
Quarter: 2012Q2

REPORT INFORMATION
  Report Type: 
  Country: None (occurrence: None)
  Receive Date: 20120425
  Receipt Date: 20120419
  Transmission Date: 20120825
  Serious: Yes (Death, Life-Threatening, Hospitalization, Disabling)
  Sender: FDA-Public Use
  Company Number: US-GLAXOSMITHKLINE-A0972641A

PATIENT
  Age: 64 Year
  Sex: Female

DRUGS (6)
  1. VICODIN [Concomitant]
  2. NEXIUM [Concomitant]
  3. SERTRALINE HYDROCHLORIDE [Concomitant]
  4. GABAPENTIN [Concomitant]
  5. DANAZOL [Concomitant]
  6. PROMACTA [Suspect]
     Indication: PRODUCT USED FOR UNKNOWN INDICATION
     Dosage: 50MG PER DAY
     Route: 048
     Dates: start: 20120319

REACTIONS (1)
  - HAEMORRHAGE INTRACRANIAL [None]
